FAERS Safety Report 16497894 (Version 1)
Quarter: 2019Q2

REPORT INFORMATION
  Report Type: Report from Study
  Country: US (occurrence: US)
  Receive Date: 20190628
  Receipt Date: 20190628
  Transmission Date: 20190711
  Serious: Yes (Life-Threatening, Hospitalization, Other)
  Sender: FDA-Public Use
  Company Number: US-INDIVIOR LIMITED-INDV-114189-2018

PATIENT
  Age: 40 Year
  Sex: Male

DRUGS (4)
  1. BUPRENORPHINE TABLET GENERIC [Suspect]
     Active Substance: BUPRENORPHINE
     Dosage: UNKNOWN
     Route: 060
     Dates: start: 2018
  2. SUBLOCADE [Suspect]
     Active Substance: BUPRENORPHINE
     Indication: DRUG USE DISORDER
     Dosage: 300 MG, QMO (1ST INJECTION)
     Route: 065
     Dates: start: 201808, end: 2018
  3. BUPRENORPHINE TABLET GENERIC [Suspect]
     Active Substance: BUPRENORPHINE
     Indication: DRUG DEPENDENCE
     Dosage: ONE QUARTER OF AN 8 MG TABLET DAILY
     Route: 060
     Dates: start: 2013, end: 2018
  4. BUPRENORPHINE TABLET GENERIC [Suspect]
     Active Substance: BUPRENORPHINE
     Dosage: 8 MG, DAILY FOR TWO WEEKS
     Route: 060
     Dates: start: 2018, end: 2018

REACTIONS (13)
  - Diarrhoea [Unknown]
  - Sepsis [Not Recovered/Not Resolved]
  - Anxiety [Unknown]
  - Feeling jittery [Unknown]
  - Electrocardiogram T wave inversion [Not Recovered/Not Resolved]
  - Constipation [Unknown]
  - Drug withdrawal syndrome [Unknown]
  - Influenza like illness [Unknown]
  - Endocarditis bacterial [Not Recovered/Not Resolved]
  - Salmonellosis [Not Recovered/Not Resolved]
  - Atrial flutter [Not Recovered/Not Resolved]
  - Septic embolus [Not Recovered/Not Resolved]
  - Wrong technique in product usage process [Not Recovered/Not Resolved]

NARRATIVE: CASE EVENT DATE: 2018
